FAERS Safety Report 6889012-6 (Version None)
Quarter: 2010Q3

REPORT INFORMATION
  Report Type: 
  Country: None (occurrence: None)
  Receive Date: 20100730
  Receipt Date: 20071212
  Transmission Date: 20110219
  Serious: No
  Sender: FDA-Public Use
  Company Number: US-PFIZER INC-2007105197

PATIENT
  Sex: Male

DRUGS (5)
  1. LIPITOR [Suspect]
  2. PROCARDIA XL [Suspect]
  3. PLAVIX [Concomitant]
  4. PRAVASTATIN [Concomitant]
  5. ACETYLSALICYLIC ACID SRT [Concomitant]

REACTIONS (1)
  - ERECTILE DYSFUNCTION [None]
